FAERS Safety Report 23255605 (Version 1)
Quarter: 2023Q4

REPORT INFORMATION
  Report Type: Spontaneous
  Country: US (occurrence: US)
  Receive Date: 20231203
  Receipt Date: 20231203
  Transmission Date: 20240109
  Serious: No
  Sender: FDA-Public Use
  Company Number: US-AVEO ONCOLOGY-2023-AVEO-US000915

PATIENT

DRUGS (15)
  1. FOTIVDA [Suspect]
     Active Substance: TIVOZANIB HYDROCHLORIDE
     Indication: Renal cell carcinoma
     Dosage: 1.34 MG, DAILY FOR 21 DAYS WITH 7 DAYS OFF (28-DAY CYCLE)
     Route: 048
  2. FOTIVDA [Suspect]
     Active Substance: TIVOZANIB HYDROCHLORIDE
     Dosage: 1.34 MG, DAILY FOR 21 DAYS WITH 7 DAYS OFF (28-DAY CYCLE)
     Route: 048
  3. AMLODIPINE [Concomitant]
     Active Substance: AMLODIPINE BESYLATE
  4. ATORVASTATIN [Concomitant]
     Active Substance: ATORVASTATIN
  5. CEPHALEXIN [Concomitant]
     Active Substance: CEPHALEXIN
  6. IRON [Concomitant]
     Active Substance: IRON
  7. ATROPINE\DIPHENOXYLATE [Concomitant]
     Active Substance: ATROPINE\DIPHENOXYLATE
  8. ELIQUIS [Concomitant]
     Active Substance: APIXABAN
  9. METOPROLOL TARTRATE [Concomitant]
     Active Substance: METOPROLOL TARTRATE
  10. NAPROXEN [Concomitant]
     Active Substance: NAPROXEN
  11. PANTOPRAZOLE [Concomitant]
     Active Substance: PANTOPRAZOLE
  12. SULFAMETHOXAZOLE AND TRIMETHOPRIM [Concomitant]
     Active Substance: SULFAMETHOXAZOLE\TRIMETHOPRIM
  13. ASPIRIN [Concomitant]
     Active Substance: ASPIRIN
  14. TRAMADOL [Concomitant]
     Active Substance: TRAMADOL\TRAMADOL HYDROCHLORIDE
  15. VITAMIN D3 [Concomitant]
     Active Substance: CHOLECALCIFEROL

REACTIONS (1)
  - Snake bite [Unknown]
